FAERS Safety Report 14631148 (Version 1)
Quarter: 2018Q1

REPORT INFORMATION
  Report Type: Report from Study
  Country: IT (occurrence: IT)
  Receive Date: 20180313
  Receipt Date: 20180313
  Transmission Date: 20180509
  Serious: Yes (Hospitalization, Disabling)
  Sender: FDA-Public Use
  Company Number: IT-PFIZER INC-2018099095

PATIENT
  Age: 15 Year
  Sex: Male
  Weight: 78 kg

DRUGS (8)
  1. ARABINOSYLCYTOSINE [Concomitant]
     Active Substance: CYTARABINE
     Dosage: UNK
  2. PREDNISONE. [Concomitant]
     Active Substance: PREDNISONE
     Dosage: UNK
  3. ASPARAGINASE [Concomitant]
     Active Substance: ASPARAGINASE
     Dosage: UNK
  4. METFORMIN [Concomitant]
     Active Substance: METFORMIN HYDROCHLORIDE
     Indication: DIABETES MELLITUS
     Dosage: 15 MG, 1X/DAY
     Dates: start: 20140914, end: 20150130
  5. VINCRISTINE SULFATE. [Suspect]
     Active Substance: VINCRISTINE SULFATE
     Indication: ACUTE LYMPHOCYTIC LEUKAEMIA
     Dosage: 1.5 G/M2, UNK
     Route: 065
     Dates: start: 20140922, end: 20141013
  6. GLIVEC [Suspect]
     Active Substance: IMATINIB MESYLATE
     Indication: ACUTE LYMPHOCYTIC LEUKAEMIA
     Dosage: UNK
     Route: 048
     Dates: start: 20140929, end: 20141125
  7. CYCLOPHOSPHAMIDE. [Concomitant]
     Active Substance: CYCLOPHOSPHAMIDE
     Dosage: UNK
  8. DAUNOMYCIN /00128201/ [Concomitant]
     Active Substance: DAUNORUBICIN
     Dosage: UNK

REACTIONS (11)
  - Hepatotoxicity [Recovered/Resolved]
  - Febrile neutropenia [Recovered/Resolved]
  - Pulmonary mycosis [Recovered/Resolved]
  - Neuropathy peripheral [Recovered/Resolved]
  - Bronchiolitis [Recovered/Resolved]
  - Sepsis [Recovered/Resolved]
  - Myositis [Unknown]
  - Myopathy [Recovered/Resolved]
  - Herpes zoster [Unknown]
  - Lung infection [Recovered/Resolved]
  - Neurotoxicity [Recovered/Resolved]

NARRATIVE: CASE EVENT DATE: 20141008
